FAERS Safety Report 10361344 (Version 1)
Quarter: 2014Q3

REPORT INFORMATION
  Report Type: Spontaneous
  Country: TW (occurrence: TW)
  Receive Date: 20140804
  Receipt Date: 20140804
  Transmission Date: 20150326
  Serious: Yes (Death, Other)
  Sender: FDA-Public Use
  Company Number: PHHY2014TW094514

PATIENT
  Age: 38 Year
  Sex: Female

DRUGS (6)
  1. CARBOPLATIN. [Suspect]
     Active Substance: CARBOPLATIN
     Indication: ENDOMETRIAL ADENOCARCINOMA
  2. PACLITAXEL. [Suspect]
     Active Substance: PACLITAXEL
     Dosage: 80 MG/M2, UNK
  3. DOXORUBICIN [Suspect]
     Active Substance: DOXORUBICIN
     Indication: ENDOMETRIAL ADENOCARCINOMA
     Dosage: 60 MG/M2, UNK
  4. CISPLATIN. [Suspect]
     Active Substance: CISPLATIN
     Indication: ENDOMETRIAL ADENOCARCINOMA
     Dosage: 50 MG/M2, UNK
  5. PACLITAXEL. [Suspect]
     Active Substance: PACLITAXEL
     Indication: ENDOMETRIAL CANCER METASTATIC
     Dosage: 175 MG/M2, UNK
  6. RADIATION THERAPY [Suspect]
     Active Substance: RADIATION THERAPY
     Indication: ENDOMETRIAL ADENOCARCINOMA
     Route: 061

REACTIONS (12)
  - Death [Fatal]
  - Chest discomfort [Unknown]
  - Metastases to lung [Unknown]
  - Lymphadenopathy [Unknown]
  - Cough [Unknown]
  - Neuralgia [Unknown]
  - Pneumothorax spontaneous [Unknown]
  - Metastases to the mediastinum [Unknown]
  - Dyspnoea [Unknown]
  - Endometrial adenocarcinoma [Unknown]
  - Swelling face [Unknown]
  - Drug effect incomplete [Unknown]
